FAERS Safety Report 11981144 (Version 2)
Quarter: 2016Q3

REPORT INFORMATION
  Report Type: Spontaneous
  Country: US (occurrence: US)
  Receive Date: 20160129
  Receipt Date: 20160804
  Transmission Date: 20161109
  Serious: No
  Sender: FDA-Public Use
  Company Number: US-ASTRAZENECA-2016SE06671

PATIENT
  Sex: Female
  Weight: 98 kg

DRUGS (10)
  1. BYDUREON [Suspect]
     Active Substance: EXENATIDE
     Indication: TYPE 2 DIABETES MELLITUS
     Dosage: 2.0MG UNKNOWN
     Route: 058
     Dates: start: 201601
  2. THYROID MEDICATION [Concomitant]
     Active Substance: UNSPECIFIED INGREDIENT
     Indication: THYROID DISORDER
  3. PRAVASTATIN. [Concomitant]
     Active Substance: PRAVASTATIN
     Indication: BLOOD CHOLESTEROL ABNORMAL
  4. LANTUS [Concomitant]
     Active Substance: INSULIN GLARGINE
  5. BYDUREON [Suspect]
     Active Substance: EXENATIDE
     Indication: TYPE 2 DIABETES MELLITUS
     Dosage: 2.0MG UNKNOWN
     Route: 058
     Dates: start: 201512
  6. VICTOZA [Concomitant]
     Active Substance: LIRAGLUTIDE
  7. BYETTA [Suspect]
     Active Substance: EXENATIDE
     Indication: TYPE 2 DIABETES MELLITUS
     Route: 058
     Dates: start: 2011
  8. METFORMIN [Concomitant]
     Active Substance: METFORMIN HYDROCHLORIDE
     Indication: TYPE 2 DIABETES MELLITUS
  9. LISINOPRIL. [Suspect]
     Active Substance: LISINOPRIL
     Route: 048
  10. INSULIN [Concomitant]
     Active Substance: INSULIN NOS

REACTIONS (8)
  - Vomiting [Recovering/Resolving]
  - Product quality issue [Unknown]
  - Hypoaesthesia [Unknown]
  - Nausea [Recovering/Resolving]
  - Injection site bruising [Recovered/Resolved]
  - Abdominal discomfort [Recovering/Resolving]
  - Injection site extravasation [Unknown]
  - Injection site nodule [Not Recovered/Not Resolved]
